FAERS Safety Report 9643706 (Version 1)
Quarter: 2013Q4

REPORT INFORMATION
  Report Type: Spontaneous
  Country: US (occurrence: US)
  Receive Date: 20131024
  Receipt Date: 20131024
  Transmission Date: 20140711
  Serious: Yes (Hospitalization)
  Sender: FDA-Public Use
  Company Number: US-PFIZER INC-2013300323

PATIENT
  Age: 7 Day
  Sex: Female
  Weight: 1.85 kg

DRUGS (2)
  1. VANCOMYCIN HCL [Suspect]
     Indication: NECROTISING COLITIS
     Dosage: 12.5 MG/KG EVERY 12 HOURS
  2. GENTAMICIN [Concomitant]
     Indication: NECROTISING COLITIS
     Dosage: UNK

REACTIONS (3)
  - Toxicity to various agents [Recovering/Resolving]
  - Renal disorder [Recovering/Resolving]
  - Urine output decreased [Recovering/Resolving]
